FAERS Safety Report 8183884-3 (Version None)
Quarter: 2012Q1

REPORT INFORMATION
  Report Type: 
  Country: None (occurrence: None)
  Receive Date: 20120305
  Receipt Date: 20120301
  Transmission Date: 20120608
  Serious: Yes (Other)
  Sender: FDA-Public Use
  Company Number: US-PFIZER INC-2012056166

PATIENT
  Age: 64 Year
  Sex: Male
  Weight: 95.8 kg

DRUGS (13)
  1. SIMVASTATIN [Concomitant]
     Dosage: UNK
  2. VICODIN [Concomitant]
     Dosage: UNK
  3. TRAMADOL [Concomitant]
     Dosage: UNK
  4. HYDROXYZINE [Concomitant]
     Dosage: UNK
  5. COUMADIN [Concomitant]
     Dosage: UNK
  6. PAROXETINE [Concomitant]
     Dosage: UNK
  7. OMEPRAZOLE [Concomitant]
     Dosage: UNK
  8. METOPROLOL [Concomitant]
     Dosage: UNK
  9. GABAPENTIN [Concomitant]
     Dosage: UNK
  10. FISH OIL [Concomitant]
     Dosage: UNK
  11. TIKOSYN [Suspect]
     Indication: ATRIAL FIBRILLATION
     Dosage: 500 UG, 2X/DAY
     Route: 048
     Dates: end: 20120228
  12. LISINOPRIL [Concomitant]
     Dosage: UNK
  13. SILDENAFIL [Concomitant]
     Dosage: UNK

REACTIONS (3)
  - GASTROINTESTINAL HAEMORRHAGE [None]
  - BLOOD POTASSIUM DECREASED [None]
  - HAEMOGLOBIN DECREASED [None]
